FAERS Safety Report 23958820 (Version 1)
Quarter: 2024Q2

REPORT INFORMATION
  Report Type: Report from Study
  Country: EG (occurrence: EG)
  Receive Date: 20240611
  Receipt Date: 20240611
  Transmission Date: 20240716
  Serious: Yes (Hospitalization, Other)
  Sender: FDA-Public Use
  Company Number: EG-ABBVIE-5790372

PATIENT
  Sex: Male

DRUGS (1)
  1. RINVOQ [Suspect]
     Active Substance: UPADACITINIB
     Indication: Rheumatoid arthritis
     Dosage: 1 TABLET?LAST ADMIN DATE-2024
     Route: 048
     Dates: start: 20240429

REACTIONS (5)
  - Cerebrovascular accident [Unknown]
  - Pneumonitis [Unknown]
  - Pneumonia [Unknown]
  - Pleurisy [Unknown]
  - Immune system disorder [Unknown]
